FAERS Safety Report 24972655 (Version 2)
Quarter: 2025Q1

REPORT INFORMATION
  Report Type: Spontaneous
  Country: US (occurrence: US)
  Receive Date: 20250215
  Receipt Date: 20250218
  Transmission Date: 20250409
  Serious: Yes (Other)
  Sender: AUROBINDO
  Company Number: US-AUROBINDO-AUR-APL-2024-060153

PATIENT
  Age: 21 Year
  Sex: Female

DRUGS (2)
  1. HYDROXYCHLOROQUINE [Suspect]
     Active Substance: HYDROXYCHLOROQUINE
     Indication: Product used for unknown indication
     Route: 065
  2. PREDNISONE [Suspect]
     Active Substance: PREDNISONE
     Indication: Product used for unknown indication
     Route: 065

REACTIONS (6)
  - Renal impairment [Recovered/Resolved]
  - Pulmonary oedema [Unknown]
  - Pleural effusion [Unknown]
  - Anaemia [Recovered/Resolved]
  - Pre-eclampsia [Unknown]
  - Exposure during pregnancy [Unknown]
